FAERS Safety Report 23878751 (Version 4)
Quarter: 2024Q2

REPORT INFORMATION
  Report Type: Spontaneous
  Country: PT (occurrence: PT)
  Receive Date: 20240521
  Receipt Date: 20240617
  Transmission Date: 20240716
  Serious: Yes (Other)
  Sender: FDA-Public Use
  Company Number: PT-RECORDATI-2024003186

PATIENT
  Age: 67 Year
  Sex: Male

DRUGS (13)
  1. DOCETAXEL [Suspect]
     Active Substance: DOCETAXEL\DOCETAXEL ANHYDROUS
     Indication: Prostate cancer metastatic
     Dosage: 75 MILLIGRAM/SQ. METER, 1 CYCLICAL (SIX CYCLES OF 75 MG/M2 EVERY THREE WEEKS)
     Route: 065
     Dates: start: 201909, end: 202001
  2. DOCETAXEL [Suspect]
     Active Substance: DOCETAXEL\DOCETAXEL ANHYDROUS
     Indication: Adrenal neoplasm
  3. DOCETAXEL [Suspect]
     Active Substance: DOCETAXEL\DOCETAXEL ANHYDROUS
     Indication: Metastases to lymph nodes
  4. DOCETAXEL [Suspect]
     Active Substance: DOCETAXEL\DOCETAXEL ANHYDROUS
     Indication: Metastases to bone
  5. ELIGARD [Suspect]
     Active Substance: LEUPROLIDE ACETATE
     Indication: Prostate cancer
     Dosage: UNK UNK, Q 6 MONTH (LONG TERM)
     Route: 065
     Dates: start: 201909
  6. ELIGARD [Suspect]
     Active Substance: LEUPROLIDE ACETATE
     Indication: Metastases to bone
  7. ELIGARD [Suspect]
     Active Substance: LEUPROLIDE ACETATE
     Indication: Metastases to lymph nodes
  8. ELIGARD [Suspect]
     Active Substance: LEUPROLIDE ACETATE
     Indication: Adrenal neoplasm
  9. ELIGARD [Suspect]
     Active Substance: LEUPROLIDE ACETATE
     Indication: Prostate cancer metastatic
  10. LEUPROLIDE ACETATE [Suspect]
     Active Substance: ISOPROPYL ALCOHOL\LEUPROLIDE ACETATE
     Indication: Prostate cancer metastatic
     Dosage: UNK LONG TERM
     Route: 065
     Dates: start: 201909
  11. LEUPROLIDE ACETATE [Suspect]
     Active Substance: ISOPROPYL ALCOHOL\LEUPROLIDE ACETATE
     Indication: Metastases to bone
  12. LEUPROLIDE ACETATE [Suspect]
     Active Substance: ISOPROPYL ALCOHOL\LEUPROLIDE ACETATE
     Indication: Metastases to lymph nodes
  13. LEUPROLIDE ACETATE [Suspect]
     Active Substance: ISOPROPYL ALCOHOL\LEUPROLIDE ACETATE
     Indication: Adrenal neoplasm

REACTIONS (5)
  - Malignant neoplasm progression [Recovering/Resolving]
  - Addison^s disease [Recovering/Resolving]
  - Metastases to adrenals [Recovering/Resolving]
  - Neuroendocrine carcinoma metastatic [Recovering/Resolving]
  - Neuroendocrine carcinoma of prostate [Recovering/Resolving]

NARRATIVE: CASE EVENT DATE: 20210101
